FAERS Safety Report 14352433 (Version 3)
Quarter: 2018Q3

REPORT INFORMATION
  Report Type: Spontaneous
  Country: US (occurrence: US)
  Receive Date: 20180104
  Receipt Date: 20180703
  Transmission Date: 20181010
  Serious: No
  Sender: FDA-Public Use
  Company Number: US-AVEDRO-AVE-2017-0350-AE

PATIENT
  Age: 62 Year
  Sex: Female
  Weight: 108.96 kg

DRUGS (5)
  1. LISINOPRIL. [Concomitant]
     Active Substance: LISINOPRIL
     Indication: PRODUCT USED FOR UNKNOWN INDICATION
     Dosage: 10MG DAILY
  2. ARIMIDEX [Concomitant]
     Active Substance: ANASTROZOLE
     Indication: PRODUCT USED FOR UNKNOWN INDICATION
     Dosage: 1MG DAILY
  3. ICRS SURGERY [Suspect]
     Active Substance: DEVICE
     Indication: PRODUCT USED FOR UNKNOWN INDICATION
     Route: 047
     Dates: start: 201712, end: 201712
  4. PHOTREXA [Suspect]
     Active Substance: RIBOFLAVIN 5^-PHOSPHATE SODIUM
     Indication: KERATOCONUS
     Dosage: 2 DROPS EVERY 5?10 SECONDS
     Route: 047
     Dates: start: 20171206, end: 20171206
  5. PHOTREXA VISCOUS [Suspect]
     Active Substance: RIBOFLAVIN 5^-PHOSPHATE SODIUM
     Indication: KERATOCONUS
     Dosage: 1 DROP EVERY 2 MINUTES FOR 30 MINUTES FOR A TOTAL OF 1 HOUR
     Route: 047
     Dates: start: 20171206, end: 20171206

REACTIONS (4)
  - Corneal infiltrates [Recovered/Resolved with Sequelae]
  - Corneal opacity [Recovered/Resolved with Sequelae]
  - Keratitis [Recovered/Resolved with Sequelae]
  - Corneal thinning [Recovered/Resolved with Sequelae]

NARRATIVE: CASE EVENT DATE: 20171211
